FAERS Safety Report 6188458-1 (Version None)
Quarter: 2009Q2

REPORT INFORMATION
  Report Type: 
  Country: None (occurrence: None)
  Receive Date: 20090513
  Receipt Date: 20090504
  Transmission Date: 20091009
  Serious: Yes (Other)
  Sender: FDA-Public Use
  Company Number: BR-AVENTIS-200914704GDDC

PATIENT
  Sex: Female
  Weight: 100 kg

DRUGS (9)
  1. LANTUS [Suspect]
     Route: 058
     Dates: start: 20060101
  2. LANTUS [Suspect]
     Route: 058
     Dates: start: 20060101
  3. OPTIPEN (INSULIN PUMP) [Suspect]
  4. LESCOL [Concomitant]
     Indication: PROPHYLAXIS
     Dosage: DOSE QUANTITY: 1
     Route: 048
     Dates: start: 20060101
  5. CARDIZEM SR [Concomitant]
     Indication: BLOOD PRESSURE ABNORMAL
     Dosage: DOSE QUANTITY: 2
     Route: 048
  6. NATRILIX                           /00340101/ [Concomitant]
     Dosage: DOSE QUANTITY: 1
     Route: 048
  7. NOVORAPID [Concomitant]
     Dosage: FREQUENCY: AFTER MEALS
     Route: 058
  8. GLIFAGE [Concomitant]
     Dosage: DOSE QUANTITY: 3
     Route: 048
  9. NON-MEDICATION THERAPY [Concomitant]

REACTIONS (3)
  - ACROMEGALY [None]
  - HYPERGLYCAEMIA [None]
  - WEIGHT INCREASED [None]
